FAERS Safety Report 6192519-0 (Version None)
Quarter: 2009Q2

REPORT INFORMATION
  Report Type: 
  Country: None (occurrence: None)
  Receive Date: 20090518
  Receipt Date: 20090506
  Transmission Date: 20091009
  Serious: Yes (Other)
  Sender: FDA-Public Use
  Company Number: PHHY2009CH17675

PATIENT
  Age: 12 Year
  Sex: Male

DRUGS (3)
  1. RITALIN LA [Suspect]
     Indication: ATTENTION DEFICIT/HYPERACTIVITY DISORDER
     Dosage: 20 MG, QD
     Dates: start: 20090401
  2. RITALIN [Suspect]
     Indication: ATTENTION DEFICIT/HYPERACTIVITY DISORDER
     Dosage: 10 MG/DAY
  3. RITALIN [Suspect]
     Dosage: 15 MG/DAY

REACTIONS (2)
  - INJURY [None]
  - TIC [None]
